FAERS Safety Report 9955245 (Version 1)
Quarter: 2014Q1

REPORT INFORMATION
  Report Type: Spontaneous
  Country: TR (occurrence: TR)
  Receive Date: 20140304
  Receipt Date: 20140304
  Transmission Date: 20141002
  Serious: Yes (Other)
  Sender: FDA-Public Use
  Company Number: TR-BAXTER-2014BAX009799

PATIENT
  Age: 15 Year
  Sex: Male

DRUGS (2)
  1. FEIBA 1000U [Suspect]
     Indication: FACTOR VIII DEFICIENCY
     Route: 065
  2. RVIIA [Suspect]
     Indication: FACTOR VIII DEFICIENCY
     Route: 065

REACTIONS (2)
  - Haemarthrosis [Recovering/Resolving]
  - Drug ineffective [Unknown]
